FAERS Safety Report 15103938 (Version 1)
Quarter: 2018Q3

REPORT INFORMATION
  Report Type: Spontaneous
  Country: ES (occurrence: ES)
  Receive Date: 20180703
  Receipt Date: 20180703
  Transmission Date: 20181010
  Serious: Yes (Hospitalization, Other)
  Sender: FDA-Public Use
  Company Number: ES-NEOS THERAPEUTICS, LP-2018NEO00076

PATIENT
  Age: 18 Year
  Sex: Female

DRUGS (3)
  1. PALIPERIDONE. [Suspect]
     Active Substance: PALIPERIDONE
     Route: 065
  2. METHYLPHENIDATE. [Suspect]
     Active Substance: METHYLPHENIDATE
     Route: 065
  3. UNSPECIFIED HORMONAL CONTRACEPTIVE THERAPY [Suspect]
     Active Substance: UNSPECIFIED INGREDIENT
     Route: 065

REACTIONS (3)
  - Cerebrovascular disorder [Recovering/Resolving]
  - Ischaemic stroke [Recovering/Resolving]
  - Cerebral artery occlusion [Recovering/Resolving]
